FAERS Safety Report 8166615-2 (Version None)
Quarter: 2012Q1

REPORT INFORMATION
  Report Type: 
  Country: None (occurrence: None)
  Receive Date: 20120227
  Receipt Date: 20120213
  Transmission Date: 20120608
  Serious: Yes (Hospitalization)
  Sender: FDA-Public Use
  Company Number: AU-MYLANLABS-2012S1003402

PATIENT
  Sex: Male

DRUGS (17)
  1. FENTANYL [Suspect]
     Dosage: 6 MICROG/KG/H
     Route: 041
  2. FENTANYL [Suspect]
     Dosage: 2 MICROG/KG
     Route: 040
  3. MORPHINE [Suspect]
     Dosage: GRADUALLY INCREASED IN DOSAGE TO 40 MICROG/KG/H BY DAY 5
     Route: 041
  4. MORPHINE [Suspect]
     Dosage: 50 MICROG/KG/H
     Route: 041
  5. MORPHINE [Suspect]
     Dosage: 150 MICROG/KG/H
     Route: 041
  6. MORPHINE [Suspect]
     Indication: ANALGESIC THERAPY
     Dosage: 20 MICROG/KG/H
     Route: 041
  7. MORPHINE [Suspect]
     Dosage: 40 MICROG/KG/H
     Route: 041
  8. CLONIDINE [Concomitant]
     Indication: ANALGESIC THERAPY
     Dosage: 0.33 MICROG/KG/H
     Route: 042
  9. FENTANYL [Suspect]
     Indication: ANALGESIC THERAPY
     Dosage: 5 MICROG/KG
     Route: 042
  10. FENTANYL [Suspect]
     Dosage: 2 MICROG/KG/H
     Route: 041
  11. MORPHINE [Suspect]
     Dosage: 200 MICROG/KG/H
     Route: 041
  12. CLONIDINE [Concomitant]
     Dosage: 0.45 MICROG/KG/H
     Route: 041
  13. FENTANYL [Suspect]
     Route: 040
  14. MIDAZOLAM [Concomitant]
     Indication: AGITATION
     Dosage: 5 MICROG/KG/MIN
     Route: 042
  15. FENTANYL [Suspect]
     Dosage: 5 MICROG/KG/H
     Route: 041
  16. MORPHINE [Suspect]
     Dosage: 100 MICROG/KG/H
     Route: 041
  17. MORPHINE [Suspect]
     Dosage: MULTIPLE 100 MICROG/KG/H BOLUSES
     Route: 040

REACTIONS (1)
  - HYPERAESTHESIA [None]
